FAERS Safety Report 24818549 (Version 1)
Quarter: 2025Q1

REPORT INFORMATION
  Report Type: Spontaneous
  Country: US (occurrence: US)
  Receive Date: 20250108
  Receipt Date: 20250108
  Transmission Date: 20250409
  Serious: Yes (Other)
  Sender: MYLAN
  Company Number: US-MYLANLABS-2025M1000227

PATIENT
  Age: 61 Year
  Sex: Female

DRUGS (1)
  1. METHOTREXATE [Suspect]
     Active Substance: METHOTREXATE
     Indication: Crohn^s disease
     Route: 065

REACTIONS (5)
  - Hyperbilirubinaemia [Unknown]
  - Ascites [Recovered/Resolved]
  - Jaundice [Unknown]
  - Gastric varices haemorrhage [Recovered/Resolved]
  - Hepatic cirrhosis [Unknown]
